FAERS Safety Report 5690630-1 (Version None)
Quarter: 2008Q2

REPORT INFORMATION
  Report Type: 
  Country: None (occurrence: None)
  Receive Date: 20080401
  Receipt Date: 20080320
  Transmission Date: 20081010
  Serious: Yes (Other)
  Sender: FDA-Public Use
  Company Number: HQWYE895913JUL06

PATIENT
  Sex: Female

DRUGS (1)
  1. PREMARIN [Suspect]
     Dosage: UNKNOWN, 48 MONTHS (4 YEARS)
     Dates: start: 19920101, end: 19960101

REACTIONS (2)
  - BREAST CANCER [None]
  - PAGET'S DISEASE OF THE BREAST [None]
